FAERS Safety Report 12091409 (Version 1)
Quarter: 2016Q1

REPORT INFORMATION
  Report Type: Spontaneous
  Country: FR (occurrence: FR)
  Receive Date: 20160218
  Receipt Date: 20160218
  Transmission Date: 20160526
  Serious: Yes (Other)
  Sender: FDA-Public Use
  Company Number: FR-ASTRAZENECA-2016SE16282

PATIENT
  Age: 31 Year
  Sex: Female

DRUGS (1)
  1. INEXIUM [Suspect]
     Active Substance: ESOMEPRAZOLE
     Indication: GASTROOESOPHAGEAL REFLUX DISEASE
     Route: 048
     Dates: start: 201501, end: 201510

REACTIONS (5)
  - Anxiety [Recovered/Resolved]
  - Confusional state [Recovered/Resolved]
  - Suicidal ideation [Recovered/Resolved]
  - Sleep disorder [Recovered/Resolved]
  - Nightmare [Recovered/Resolved]

NARRATIVE: CASE EVENT DATE: 201501
